FAERS Safety Report 19297675 (Version 1)
Quarter: 2021Q2

REPORT INFORMATION
  Report Type: Spontaneous
  Country: US (occurrence: US)
  Receive Date: 20210525
  Receipt Date: 20210525
  Transmission Date: 20210717
  Serious: No
  Sender: FDA-Public Use
  Company Number: US-SA-2021SA169417

PATIENT
  Sex: Female

DRUGS (1)
  1. DUPIXENT [Suspect]
     Active Substance: DUPILUMAB
     Indication: DERMATITIS ATOPIC
     Dosage: UNK

REACTIONS (5)
  - Rhinorrhoea [Unknown]
  - Dark circles under eyes [Unknown]
  - Lacrimation increased [Unknown]
  - Lip discolouration [Unknown]
  - Nasopharyngitis [Unknown]
